FAERS Safety Report 6718985-7 (Version None)
Quarter: 2010Q2

REPORT INFORMATION
  Report Type: 
  Country: None (occurrence: None)
  Receive Date: 20100511
  Receipt Date: 20100504
  Transmission Date: 20101027
  Serious: Yes (Hospitalization)
  Sender: FDA-Public Use
  Company Number: SE-BAYER-201024510GPV

PATIENT
  Age: 19 Year
  Sex: Female

DRUGS (1)
  1. YASMIN [Suspect]
     Indication: CONTRACEPTION
     Route: 048
     Dates: end: 20100313

REACTIONS (4)
  - BACTERIAL INFECTION [None]
  - PAINFUL RESPIRATION [None]
  - PULMONARY EMBOLISM [None]
  - PULMONARY INFARCTION [None]
